FAERS Safety Report 5597132-1 (Version None)
Quarter: 2008Q1

REPORT INFORMATION
  Report Type: 
  Country: None (occurrence: None)
  Receive Date: 20080121
  Receipt Date: 20080111
  Transmission Date: 20080703
  Serious: Yes (Other)
  Sender: FDA-Public Use
  Company Number: PHBS2008JP00696

PATIENT
  Age: 85 Year

DRUGS (6)
  1. STARSIS [Suspect]
     Indication: DIABETES MELLITUS
     Dosage: UNK, UNK
     Route: 048
     Dates: end: 20071201
  2. GASTER [Suspect]
  3. MUCOSTA [Concomitant]
  4. GLAKAY [Concomitant]
  5. ROCALTROL [Concomitant]
  6. FLOMOX [Concomitant]

REACTIONS (1)
  - BLOOD POTASSIUM INCREASED [None]
